FAERS Safety Report 5391604-0 (Version None)
Quarter: 2007Q3

REPORT INFORMATION
  Report Type: 
  Country: None (occurrence: None)
  Receive Date: 20070719
  Receipt Date: 20070709
  Transmission Date: 20080115
  Serious: Yes (Other)
  Sender: FDA-Public Use
  Company Number: US-PFIZER INC-2007057446

PATIENT
  Sex: Female
  Weight: 63.5 kg

DRUGS (2)
  1. LIPITOR [Suspect]
     Indication: BLOOD CHOLESTEROL INCREASED
     Route: 048
     Dates: start: 20051222, end: 20060503
  2. COPAXONE [Concomitant]

REACTIONS (6)
  - AMNESIA [None]
  - LIVER FUNCTION TEST ABNORMAL [None]
  - MUSCLE CONTRACTURE [None]
  - MUSCULAR WEAKNESS [None]
  - MYALGIA [None]
  - PAIN IN EXTREMITY [None]
